FAERS Safety Report 8845314 (Version 2)
Quarter: 2012Q4

REPORT INFORMATION
  Report Type: 
  Country: US (occurrence: US)
  Receive Date: 20121017
  Receipt Date: 20121126
  Transmission Date: 20130627
  Serious: Yes (Other)
  Sender: FDA-Public Use
  Company Number: US-BAYER-2012-108165

PATIENT
  Age: 49 Year
  Sex: Female
  Weight: 57.6 kg

DRUGS (4)
  1. BETASERON [Suspect]
     Dosage: UNK UNK, QOD
     Dates: start: 200406, end: 20120922
  2. PAROXETINE [Concomitant]
     Indication: DEPRESSION
     Dosage: dose: 1 tablet daily
  3. PAROXETINE [Concomitant]
     Indication: MOOD SWINGS
  4. CALCIUM [Concomitant]
     Indication: OSTEOPOROSIS PROPHYLAXIS
     Dosage: dose: 2 tablets daily

REACTIONS (14)
  - Unevaluable event [None]
  - Visual impairment [Recovering/Resolving]
  - Gait disturbance [Recovering/Resolving]
  - Muscular weakness [Recovering/Resolving]
  - Balance disorder [Recovering/Resolving]
  - Neuropathy peripheral [Recovering/Resolving]
  - Hypoaesthesia [Recovering/Resolving]
  - Neuropathy peripheral [Recovering/Resolving]
  - Neuropathy peripheral [Recovering/Resolving]
  - Neuropathy peripheral [Recovering/Resolving]
  - Hypoaesthesia [None]
  - Hypoaesthesia [None]
  - Drug ineffective [None]
  - Unevaluable event [None]
